FAERS Safety Report 24942962 (Version 1)
Quarter: 2025Q1

REPORT INFORMATION
  Report Type: Other
  Country: IL (occurrence: IL)
  Receive Date: 20250207
  Receipt Date: 20250207
  Transmission Date: 20250408
  Serious: Yes (Life-Threatening)
  Sender: B BRAUN
  Company Number: IL-B.Braun Medical Inc.-2170661

PATIENT
  Age: 30 Year
  Sex: Female

DRUGS (4)
  1. DEXTROSE\MAGNESIUM SULFATE [Suspect]
     Active Substance: DEXTROSE\MAGNESIUM SULFATE
     Indication: Pre-eclampsia
  2. HUMAN RED BLOOD CELL [Concomitant]
     Active Substance: HUMAN RED BLOOD CELL
  3. Oral folic acid [Concomitant]
  4. subcutaneous enoxaparin [Concomitant]

REACTIONS (2)
  - Drug ineffective [Unknown]
  - Maternal exposure during delivery [Unknown]
